FAERS Safety Report 16590808 (Version 2)
Quarter: 2019Q3

REPORT INFORMATION
  Report Type: Spontaneous
  Country: US (occurrence: US)
  Receive Date: 20190718
  Receipt Date: 20190813
  Transmission Date: 20191004
  Serious: Yes (Other)
  Sender: FDA-Public Use
  Company Number: US-PFIZER INC-2019122477

PATIENT
  Age: 38 Year
  Sex: Male

DRUGS (2)
  1. ZARONTIN [Suspect]
     Active Substance: ETHOSUXIMIDE
     Indication: EPILEPSY
     Dosage: 250 MG, 3X/DAY
     Route: 048
  2. ZARONTIN [Suspect]
     Active Substance: ETHOSUXIMIDE
     Indication: PETIT MAL EPILEPSY
     Dosage: 250 MG, 1X/DAY

REACTIONS (5)
  - Suicide attempt [Unknown]
  - Intentional product use issue [Unknown]
  - Physical assault [Unknown]
  - Seizure [Unknown]
  - Road traffic accident [Unknown]
